FAERS Safety Report 12548279 (Version 1)
Quarter: 2016Q3

REPORT INFORMATION
  Report Type: Spontaneous
  Country: US (occurrence: None)
  Receive Date: 20160711
  Receipt Date: 20160711
  Transmission Date: 20161109
  Serious: No
  Sender: FDA-Public Use
  Company Number: None

PATIENT
  Age: 33 Year
  Sex: Female
  Weight: 96.62 kg

DRUGS (2)
  1. BUPROPION SR 150MG TABLETS, 150 MG [Suspect]
     Active Substance: BUPROPION
     Indication: ANXIETY
     Route: 048
     Dates: start: 20160603, end: 20160708
  2. BUPROPION SR 150MG TABLETS, 150 MG [Suspect]
     Active Substance: BUPROPION
     Indication: DEPRESSION
     Route: 048
     Dates: start: 20160603, end: 20160708

REACTIONS (5)
  - Headache [None]
  - Musculoskeletal pain [None]
  - Neck pain [None]
  - Sensory disturbance [None]
  - Dysphagia [None]

NARRATIVE: CASE EVENT DATE: 20160628
